FAERS Safety Report 18939582 (Version 10)
Quarter: 2022Q3

REPORT INFORMATION
  Report Type: Report from Study
  Country: JP (occurrence: JP)
  Receive Date: 20210224
  Receipt Date: 20220907
  Transmission Date: 20221026
  Serious: Yes (Hospitalization, Other)
  Sender: FDA-Public Use
  Company Number: JP-BRISTOL-MYERS SQUIBB COMPANY-BMS-2021-016635

PATIENT
  Age: 61 Year
  Sex: Female
  Weight: 49.4 kg

DRUGS (11)
  1. PLACEBO [Suspect]
     Active Substance: UNSPECIFIED INGREDIENT
     Indication: Ovarian cancer
     Dosage: 600 MILLIGRAM, BID?LAST DOSE PRIOR TO EVENT ONSET: 14-FEB-2021
     Route: 048
     Dates: start: 20200629
  2. EDOXABAN TOSYLATE [Concomitant]
     Active Substance: EDOXABAN TOSYLATE
     Indication: Thrombosis prophylaxis
     Dosage: 30 MILLIGRAM, QD
     Route: 048
     Dates: start: 20200406
  3. METHYLCOBALAMIN [Concomitant]
     Active Substance: METHYLCOBALAMIN
     Indication: Peripheral sensory neuropathy
     Dosage: 500 MILLIGRAM, TID, 3 IN 1 DAY
     Route: 048
     Dates: start: 201910
  4. MIROGABALIN [Concomitant]
     Active Substance: MIROGABALIN
     Indication: Peripheral sensory neuropathy
     Dosage: 5 MILLIGRAM, BID
     Route: 048
     Dates: start: 20200409, end: 20200712
  5. MIROGABALIN [Concomitant]
     Active Substance: MIROGABALIN
     Dosage: 10 MILLIGRAM, BID
     Route: 048
     Dates: start: 20200713
  6. HERBALS [Concomitant]
     Active Substance: HERBALS
     Indication: Peripheral sensory neuropathy
     Dosage: 2.5 GRAM, TID, 3 IN 1 DAY
     Route: 048
     Dates: start: 201910
  7. SODIUM GUALENATE MONOHYDRATE [Concomitant]
     Active Substance: SODIUM GUALENATE MONOHYDRATE
     Indication: Stomatitis
     Dosage: UNK
     Route: 050
     Dates: start: 20200824
  8. EURAX [Concomitant]
     Active Substance: CROTAMITON
     Indication: Gastritis prophylaxis
     Dosage: UNK
     Route: 061
     Dates: start: 20200824
  9. EURAX [Concomitant]
     Active Substance: CROTAMITON
     Indication: Rash
  10. DEXAMETHASONE [Concomitant]
     Active Substance: DEXAMETHASONE
     Indication: Stomatitis
     Dosage: UNK
     Route: 061
     Dates: start: 20201015
  11. BENZETHONIUM CHLORIDE [Concomitant]
     Active Substance: BENZETHONIUM CHLORIDE
     Indication: Stomatitis
     Dosage: UNK?ONGOING
     Route: 050
     Dates: start: 20201015

REACTIONS (3)
  - Non-cardiogenic pulmonary oedema [Recovered/Resolved]
  - Encephalitis [Not Recovered/Not Resolved]
  - Hypophysitis [Not Recovered/Not Resolved]

NARRATIVE: CASE EVENT DATE: 20210217
